FAERS Safety Report 19087578 (Version 1)
Quarter: 2021Q2

REPORT INFORMATION
  Report Type: Spontaneous
  Country: FR (occurrence: FR)
  Receive Date: 20210402
  Receipt Date: 20210402
  Transmission Date: 20210717
  Serious: Yes (Hospitalization, Other)
  Sender: FDA-Public Use
  Company Number: FR-PFIZER INC-2021348666

PATIENT
  Age: 57 Year
  Sex: Female

DRUGS (4)
  1. CRIZOTINIB [Suspect]
     Active Substance: CRIZOTINIB
     Dosage: 200 MG, 2X/DAY
     Dates: start: 20161114
  2. CRIZOTINIB [Suspect]
     Active Substance: CRIZOTINIB
     Indication: LUNG ADENOCARCINOMA STAGE IV
     Dosage: 250 MG, 2X/DAY
     Dates: start: 2016
  3. CRIZOTINIB [Suspect]
     Active Substance: CRIZOTINIB
     Dosage: UNK
     Dates: start: 201609, end: 201610
  4. CRIZOTINIB [Suspect]
     Active Substance: CRIZOTINIB
     Dosage: 250 MG, 2X/DAY
     Dates: start: 2017

REACTIONS (9)
  - Pericardial effusion [Unknown]
  - Hepatocellular injury [Unknown]
  - Acute coronary syndrome [Unknown]
  - Ventricular tachycardia [Unknown]
  - Meningorrhagia [Unknown]
  - Neoplasm progression [Unknown]
  - Syncope [Unknown]
  - Aneurysm ruptured [Unknown]
  - Extradural haematoma [Unknown]

NARRATIVE: CASE EVENT DATE: 2016
